FAERS Safety Report 8488441-7 (Version None)
Quarter: 2012Q2

REPORT INFORMATION
  Report Type: 
  Country: None (occurrence: None)
  Receive Date: 20120626
  Receipt Date: 20120611
  Transmission Date: 20120825
  Serious: Yes (Hospitalization, Disabling, Other)
  Sender: FDA-Public Use
  Company Number: 2011MA009259

PATIENT
  Sex: Female
  Weight: 45.3597 kg

DRUGS (15)
  1. PAROXETINE [Concomitant]
  2. DILANTIN [Concomitant]
  3. QUIETIAPINE [Concomitant]
  4. SEOQUEL [Concomitant]
  5. PROMETHAZINE [Concomitant]
  6. LORAZEPAM [Concomitant]
  7. TRAZODONE HCL [Concomitant]
  8. ZELNORM [Concomitant]
  9. BENADRYL [Concomitant]
  10. ATIVAN [Concomitant]
  11. METOCLOPRAMIDE [Suspect]
     Indication: NAUSEA
     Dates: start: 20021201, end: 20091001
  12. METOCLOPRAMIDE [Suspect]
     Indication: IMPAIRED GASTRIC EMPTYING
     Dates: start: 20021201, end: 20091001
  13. SLEEP MEDICATIONS [Concomitant]
  14. DOMPERIDONE [Concomitant]
  15. PHENERGAN HCL [Concomitant]

REACTIONS (12)
  - DIABETIC GASTROPARESIS [None]
  - NAUSEA [None]
  - GASTROOESOPHAGEAL REFLUX DISEASE [None]
  - DYSKINESIA [None]
  - TARDIVE DYSKINESIA [None]
  - ABDOMINAL PAIN UPPER [None]
  - RASH [None]
  - TREMOR [None]
  - ECONOMIC PROBLEM [None]
  - ABDOMINAL PAIN [None]
  - EXTRAPYRAMIDAL DISORDER [None]
  - EMOTIONAL DISTRESS [None]
